FAERS Safety Report 24721896 (Version 2)
Quarter: 2024Q4

REPORT INFORMATION
  Report Type: Spontaneous
  Country: US (occurrence: US)
  Receive Date: 20241211
  Receipt Date: 20241211
  Transmission Date: 20250114
  Serious: Yes (Other)
  Sender: AMGEN
  Company Number: US-AMGEN-USASP2024239779

PATIENT
  Sex: Male

DRUGS (5)
  1. PREDNISONE [Suspect]
     Active Substance: PREDNISONE
     Indication: Glycogen storage disease type II
     Dosage: 1 MILLIGRAM/KILOGRAM
     Route: 048
  2. PREDNISONE [Suspect]
     Active Substance: PREDNISONE
     Dosage: UNK (TAPER)
     Route: 048
  3. RITUXIMAB [Suspect]
     Active Substance: RITUXIMAB
     Indication: Glycogen storage disease type II
     Dosage: UNK
     Route: 065
  4. METHYLPREDNISOLONE [Suspect]
     Active Substance: METHYLPREDNISOLONE
     Indication: Glycogen storage disease type II
     Dosage: 0.8 TO 2.0 MG/KG
     Route: 040
  5. TACROLIMUS [Concomitant]
     Active Substance: TACROLIMUS
     Indication: Glycogen storage disease type II
     Dosage: 1 MILLIGRAM, BID
     Route: 048

REACTIONS (3)
  - Arrhythmia [Unknown]
  - Nausea [Unknown]
  - Off label use [Unknown]
